FAERS Safety Report 16380187 (Version 2)
Quarter: 2020Q1

REPORT INFORMATION
  Report Type: Report from Study
  Country: None (occurrence: US)
  Receive Date: 20190601
  Receipt Date: 20200219
  Transmission Date: 20200409
  Serious: Yes (Other)
  Sender: FDA-Public Use
  Company Number: US-ABBVIE-19K-163-2685472-00

PATIENT
  Sex: Female
  Weight: 54.48 kg

DRUGS (2)
  1. HUMIRA [Suspect]
     Active Substance: ADALIMUMAB
     Indication: CROHN^S DISEASE
     Route: 058
  2. POTASSIUM [Concomitant]
     Active Substance: POTASSIUM
     Indication: PRODUCT USED FOR UNKNOWN INDICATION

REACTIONS (7)
  - Oesophageal stenosis [Recovered/Resolved]
  - Renal impairment [Recovered/Resolved]
  - Vitamin D decreased [Recovered/Resolved]
  - Dysphagia [Recovered/Resolved]
  - Pain [Unknown]
  - Crohn^s disease [Recovered/Resolved]
  - Injection site pain [Unknown]
